FAERS Safety Report 14709220 (Version 1)
Quarter: 2018Q2

REPORT INFORMATION
  Report Type: Spontaneous
  Country: US (occurrence: US)
  Receive Date: 20180403
  Receipt Date: 20180403
  Transmission Date: 20180711
  Serious: Yes (Other)
  Sender: FDA-Public Use
  Company Number: US-JNJFOC-20180344978

PATIENT

DRUGS (1)
  1. EVICEL [Suspect]
     Active Substance: FIBRINOGEN HUMAN\THROMBIN HUMAN
     Indication: HERNIA REPAIR
     Route: 061

REACTIONS (10)
  - Pulmonary embolism [Unknown]
  - Deep vein thrombosis [Unknown]
  - Seroma [Unknown]
  - Off label use [Unknown]
  - Wound dehiscence [Unknown]
  - Pain [Unknown]
  - Procedural haemorrhage [Unknown]
  - Haematoma [Unknown]
  - Product use in unapproved indication [Unknown]
  - Procedural complication [Unknown]
